FAERS Safety Report 13941346 (Version 6)
Quarter: 2019Q1

REPORT INFORMATION
  Report Type: Spontaneous
  Country: US (occurrence: US)
  Receive Date: 20170906
  Receipt Date: 20190327
  Transmission Date: 20190417
  Serious: Yes (Hospitalization, Other)
  Sender: FDA-Public Use
  Company Number: US-DSJP-DSU-2017-135155

PATIENT

DRUGS (1)
  1. BENICAR HCT [Suspect]
     Active Substance: HYDROCHLOROTHIAZIDE\OLMESARTAN MEDOXOMIL
     Indication: PRODUCT USED FOR UNKNOWN INDICATION
     Dosage: 40/25MG, QD
     Route: 048
     Dates: start: 20120924, end: 20130812

REACTIONS (8)
  - Diverticulum intestinal [Recovering/Resolving]
  - Renal failure [Recovering/Resolving]
  - Sprue-like enteropathy [Recovering/Resolving]
  - Large intestine polyp [Recovering/Resolving]
  - Diarrhoea infectious [Recovering/Resolving]
  - Irritable bowel syndrome [Recovering/Resolving]
  - Haemorrhoids [Recovering/Resolving]
  - Infection [Recovered/Resolved]

NARRATIVE: CASE EVENT DATE: 20130715
